FAERS Safety Report 5474477-7 (Version None)
Quarter: 2007Q4

REPORT INFORMATION
  Report Type: 
  Country: None (occurrence: None)
  Receive Date: 20071002
  Receipt Date: 20070919
  Transmission Date: 20080405
  Serious: Yes (Hospitalization, Other)
  Sender: FDA-Public Use
  Company Number: US-ELI_LILLY_AND_COMPANY-US200709004055

PATIENT
  Age: 80 Year
  Sex: Female

DRUGS (8)
  1. FORTEO [Suspect]
     Dates: start: 20070207
  2. EVISTA [Suspect]
  3. CALCIUM WITH VITAMIN D [Concomitant]
  4. MULTI-VITAMIN [Concomitant]
  5. CELEBREX [Concomitant]
  6. ALTACE [Concomitant]
     Dosage: UNK, AS NEEDED
  7. LEXAPRO [Concomitant]
  8. GLUCOSAMINE W/CHONDROITIN [Concomitant]

REACTIONS (3)
  - ANKLE FRACTURE [None]
  - CERVICAL VERTEBRAL FRACTURE [None]
  - ROAD TRAFFIC ACCIDENT [None]
